FAERS Safety Report 22542193 (Version 1)
Quarter: 2023Q2

REPORT INFORMATION
  Report Type: Spontaneous
  Country: KR (occurrence: KR)
  Receive Date: 20230609
  Receipt Date: 20230609
  Transmission Date: 20230721
  Serious: Yes (Other)
  Sender: FDA-Public Use
  Company Number: KR-PPDUS-2023EV000217

PATIENT
  Sex: Female

DRUGS (1)
  1. BOTULINUM TOXIN TYPE A [Suspect]
     Active Substance: BOTULINUM TOXIN TYPE A
     Indication: Product used for unknown indication
     Dosage: 25 UNITS WERE APPLIED TO THE LEFT SIDE. THE PATIENT COMPLAINED OF PAIN AT THE MOMENT THE DRUG WAS I
     Dates: start: 20230520, end: 20230520

REACTIONS (2)
  - Facial paralysis [Not Recovered/Not Resolved]
  - Injection site pain [Unknown]

NARRATIVE: CASE EVENT DATE: 20230520
